FAERS Safety Report 5048778-0 (Version None)
Quarter: 2006Q3

REPORT INFORMATION
  Report Type: 
  Country: None (occurrence: None)
  Receive Date: 20060705
  Receipt Date: 20060619
  Transmission Date: 20061208
  Serious: Yes (Hospitalization)
  Sender: FDA-Public Use
  Company Number: JP200604000330

PATIENT
  Age: 84 Year
  Sex: Female

DRUGS (8)
  1. RALOXIFENE HCL [Suspect]
     Indication: OSTEOPOROSIS POSTMENOPAUSAL
     Dosage: SEE IMAGE
     Route: 048
     Dates: start: 20050711, end: 20050818
  2. RALOXIFENE HCL [Suspect]
     Indication: OSTEOPOROSIS POSTMENOPAUSAL
     Dosage: SEE IMAGE
     Route: 048
     Dates: start: 20051219
  3. ELCITONIN (ELCATONIN) [Concomitant]
  4. ASPARA-CA (ASPARTATE CALCIUM) [Concomitant]
  5. ROCORNAL (TRAPIDIL) [Concomitant]
  6. SYMMETREL /NET/ (AMANTADINE HYDROCHLORIDE) [Concomitant]
  7. NIFEDIPINE [Concomitant]
  8. WARFARIN SODIUM [Concomitant]

REACTIONS (1)
  - CEREBRAL INFARCTION [None]
